FAERS Safety Report 6941104-9 (Version None)
Quarter: 2010Q3

REPORT INFORMATION
  Report Type: 
  Country: None (occurrence: None)
  Receive Date: 20100825
  Receipt Date: 20100819
  Transmission Date: 20110219
  Serious: Yes (Disabling)
  Sender: FDA-Public Use
  Company Number: GB-BRISTOL-MYERS SQUIBB COMPANY-15251283

PATIENT
  Age: 59 Year
  Sex: Female
  Weight: 100 kg

DRUGS (7)
  1. SAXAGLIPTIN [Suspect]
     Indication: DIABETES MELLITUS
     Route: 048
     Dates: start: 20100426, end: 20100701
  2. AMLODIPINE [Concomitant]
     Route: 048
     Dates: start: 20090908
  3. BISOPROLOL [Concomitant]
     Route: 048
     Dates: start: 20080101
  4. DIAMICRON [Concomitant]
     Indication: DIABETES MELLITUS
     Dosage: DIAMICRON MR
     Route: 048
     Dates: start: 20090911
  5. DICLOFENAC [Concomitant]
     Dates: start: 20080101, end: 20090901
  6. IRBESARTAN [Concomitant]
     Route: 048
  7. OMEPRAZOLE [Concomitant]
     Dates: start: 20090901

REACTIONS (1)
  - MYALGIA [None]
